FAERS Safety Report 4547307-5 (Version None)
Quarter: 2005Q1

REPORT INFORMATION
  Report Type: 
  Country: None (occurrence: None)
  Receive Date: 20050105
  Receipt Date: 20041217
  Transmission Date: 20050727
  Serious: Yes (Other)
  Sender: FDA-Public Use
  Company Number: USA041286509

PATIENT
  Age: 52 Year
  Sex: Male
  Weight: 98 kg

DRUGS (3)
  1. STRATTERA [Suspect]
     Indication: ATTENTION DEFICIT/HYPERACTIVITY DISORDER
     Dosage: 100 MG/1 DAY
     Dates: start: 20030101
  2. COUMADIN [Concomitant]
  3. FLUOXETINE [Concomitant]

REACTIONS (3)
  - CEREBRAL CYST [None]
  - HYPOAESTHESIA [None]
  - PARAESTHESIA [None]
